FAERS Safety Report 6160327 (Version 1)
Quarter: 2020Q3

REPORT INFORMATION
  Report Type: Report from Study
  Country: US (occurrence: US)
  Receive Date: 20061102
  Receipt Date: 20061102
  Transmission Date: 20201104
  Serious: Yes (Hospitalization)
  Sender: FDA-Public Use
  Company Number: NSADSS2001020841

PATIENT
  Age: 35 Year
  Sex: Male

DRUGS (9)
  1. PLACEBO [Suspect]
     Active Substance: UNSPECIFIED INGREDIENT
     Indication: CROHN^S DISEASE
     Route: 042
  2. PENTASA [Concomitant]
     Active Substance: MESALAMINE
     Route: 048
  3. FLAGYL [Concomitant]
     Active Substance: METRONIDAZOLE\METRONIDAZOLE HYDROCHLORIDE
     Route: 048
  4. PRILOSEC [Concomitant]
     Active Substance: OMEPRAZOLE MAGNESIUM
     Route: 048
     Dates: start: 20001121
  5. WELLBUTRIN [Concomitant]
     Active Substance: BUPROPION HYDROCHLORIDE
     Route: 048
     Dates: start: 20001121
  6. PREDNISONE. [Concomitant]
     Active Substance: PREDNISONE
     Route: 048
     Dates: start: 20001121
  7. CIPROFLOXACIN. [Concomitant]
     Active Substance: CIPROFLOXACIN
     Route: 048
  8. INFLIXIMAB [Suspect]
     Active Substance: INFLIXIMAB
     Indication: CROHN^S DISEASE
     Route: 042
  9. TACROLIMUS. [Concomitant]
     Active Substance: TACROLIMUS
     Route: 048
     Dates: start: 20001121

REACTIONS (4)
  - Crohn^s disease [Recovered/Resolved]
  - Basal cell carcinoma [Unknown]
  - Therapy non-responder [None]
  - Anaemia [None]

NARRATIVE: CASE EVENT DATE: 20001118
